FAERS Safety Report 26123040 (Version 1)
Quarter: 2025Q4

REPORT INFORMATION
  Report Type: Spontaneous
  Country: CA (occurrence: CA)
  Receive Date: 20251204
  Receipt Date: 20251204
  Transmission Date: 20260118
  Serious: Yes (Hospitalization, Other)
  Sender: PFIZER
  Company Number: CA-PFIZER INC-202500237369

PATIENT
  Sex: Male
  Weight: 99 kg

DRUGS (4)
  1. INFLIXIMAB [Suspect]
     Active Substance: INFLIXIMAB
     Indication: Crohn^s disease
     Dosage: 1000 MG
     Route: 042
  2. EPIPEN [Suspect]
     Active Substance: EPINEPHRINE
     Dosage: 0.3 MG (0.3MG/0.3ML AUTO-INJECTOR, SOLUTION INTRAMUSCULAR)
     Route: 065
  3. IMURAN [Concomitant]
     Active Substance: AZATHIOPRINE
     Dosage: UNK
     Route: 065
  4. PENTASA [Concomitant]
     Active Substance: MESALAMINE
     Dosage: UNK
     Route: 065

REACTIONS (2)
  - Arrhythmia [Recovering/Resolving]
  - Energy increased [Recovering/Resolving]
